FAERS Safety Report 7623332-2 (Version None)
Quarter: 2011Q3

REPORT INFORMATION
  Report Type: 
  Country: None (occurrence: None)
  Receive Date: 20110720
  Receipt Date: 20110711
  Transmission Date: 20111222
  Serious: Yes (Other)
  Sender: FDA-Public Use
  Company Number: GB-JNJFOC-20110208666

PATIENT
  Sex: Male
  Weight: 70 kg

DRUGS (5)
  1. INFLIXIMAB, RECOMBINANT [Suspect]
     Indication: RHEUMATOID ARTHRITIS
     Route: 042
     Dates: start: 20030130
  2. INFLIXIMAB, RECOMBINANT [Suspect]
     Route: 042
     Dates: start: 20070111
  3. SULFASALAZINE [Concomitant]
     Dates: start: 20030130
  4. METHOTREXATE [Concomitant]
     Dates: start: 20030130
  5. OTHER THERAPEUTIC PRODUCT UNSPECIFIED [Concomitant]

REACTIONS (1)
  - SQUAMOUS CELL CARCINOMA OF SKIN [None]
